FAERS Safety Report 22348423 (Version 3)
Quarter: 2023Q2

REPORT INFORMATION
  Report Type: Spontaneous
  Country: DE (occurrence: DE)
  Receive Date: 20230522
  Receipt Date: 20230608
  Transmission Date: 20230722
  Serious: Yes (Death, Other)
  Sender: FDA-Public Use
  Company Number: DE-JNJFOC-20230216506

PATIENT
  Age: 72 Year
  Sex: Male

DRUGS (13)
  1. IMBRUVICA [Suspect]
     Active Substance: IBRUTINIB
     Indication: Diffuse large B-cell lymphoma
     Route: 048
     Dates: start: 20171025
  2. LENALIDOMIDE [Suspect]
     Active Substance: LENALIDOMIDE
     Indication: Diffuse large B-cell lymphoma
     Dosage: D1-21 Q28
     Route: 048
     Dates: start: 20171025
  3. RITUXIMAB [Suspect]
     Active Substance: RITUXIMAB
     Indication: Diffuse large B-cell lymphoma
     Dosage: 375 MG, DAY 1 OF EACH 28 DAY CYCLE FOR 6 CYCLES
     Route: 042
     Dates: start: 20171025
  4. VINCRISTINE [Concomitant]
     Active Substance: VINCRISTINE
     Indication: Diffuse large B-cell lymphoma stage IV
     Dosage: 1 MILLIGRAM (COMPLETED SIX COURSES OF R-CHOP-14
     Route: 042
  5. CYTARABINE [Suspect]
     Active Substance: CYTARABINE
     Indication: Acute myelomonocytic leukaemia
     Dosage: 100 MILLIGRAM, QD (A MILD, PALLIATIVE THERAPY REGIMENS)
     Route: 042
  6. FILGRASTIM [Suspect]
     Active Substance: FILGRASTIM
     Indication: Diffuse large B-cell lymphoma recurrent
     Dosage: SHORT ACTINGG-CSF -FILGRASTIM ON DAY 4 UNTIL GRANULOCYTE REGENERATION
     Route: 058
     Dates: start: 20180228
  7. FILGRASTIM [Suspect]
     Active Substance: FILGRASTIM
     Indication: Diffuse large B-cell lymphoma recurrent
     Dosage: 375 MG/M2(DAY 1OF EACH 28 DAY CYCLE FOR 6 CYCLES)
     Route: 058
     Dates: start: 201801
  8. FILGRASTIM [Suspect]
     Active Substance: FILGRASTIM
     Indication: Diffuse large B-cell lymphoma recurrent
     Dosage: 375 MG/M2(DAY 1OF EACH 28 DAY CYCLE FOR 6 CYCLES)
     Route: 058
     Dates: start: 201801
  9. FILGRASTIM [Suspect]
     Active Substance: FILGRASTIM
     Indication: Diffuse large B-cell lymphoma recurrent
     Dosage: SHORT ACTINGG-CSF -FILGRASTIM ON DAY 4 UNTIL GRANULOCYTE REGENERATION
     Route: 058
     Dates: start: 20180228
  10. DOXORUBICIN [Concomitant]
     Active Substance: DOXORUBICIN
     Indication: Diffuse large B-cell lymphoma stage IV
     Dosage: 50 MILLIGRAM/SQ. METER (COMPLETED SIX COURSES OF
  11. AZACITIDINE [Suspect]
     Active Substance: AZACITIDINE
     Indication: Acute myelomonocytic leukaemia
     Dosage: 75 MILLIGRAM/SQ. METER (ON DAY 1-7)
     Route: 058
  12. PREDNISONE [Concomitant]
     Active Substance: PREDNISONE
     Indication: Diffuse large B-cell lymphoma stage IV
     Dosage: 100 MILLIGRAM (COMPLETED SIX COURSES OF R-CHOP-14 DAY 1-5)
     Route: 048
  13. CYCLOPHOSPHAMIDE [Concomitant]
     Active Substance: CYCLOPHOSPHAMIDE
     Indication: Diffuse large B-cell lymphoma stage IV
     Dosage: 750 MILLIGRAM/SQ. METER (COMPLETED SIX COURSES OF R-CHOP-14)

REACTIONS (5)
  - Drug ineffective [Fatal]
  - Off label use [Unknown]
  - Neutropenia [Recovering/Resolving]
  - Acute myeloid leukaemia [Unknown]
  - Second primary malignancy [Unknown]

NARRATIVE: CASE EVENT DATE: 20180101
